FAERS Safety Report 7395250-9 (Version None)
Quarter: 2011Q2

REPORT INFORMATION
  Report Type: 
  Country: None (occurrence: None)
  Receive Date: 20110405
  Receipt Date: 20110322
  Transmission Date: 20111010
  Serious: Yes (Disabling)
  Sender: FDA-Public Use
  Company Number: MY-MYLANLABS-2011S1006186

PATIENT
  Age: 58 Year
  Sex: Female

DRUGS (4)
  1. LEVODOPA W/BENSERAZIDE [Suspect]
     Indication: PARKINSON'S DISEASE
     Dosage: LEVODOPA/BENSERAZIDE 100/25 MG TID
  2. STALEVO 100 [Suspect]
     Indication: PARKINSON'S DISEASE
     Dosage: LEVODOPA/CARBIDOPA/ENTACAPONE 150/37.5/200MG TID
     Route: 065
  3. TRIHEXYPHENIDYL [Suspect]
     Indication: PARKINSON'S DISEASE
     Route: 065
  4. SELEGILINE [Suspect]
     Indication: PARKINSON'S DISEASE
     Route: 065

REACTIONS (1)
  - HAND DEFORMITY [None]
